FAERS Safety Report 4346029-3 (Version None)
Quarter: 2004Q2

REPORT INFORMATION
  Report Type: 
  Country: None (occurrence: None)
  Receive Date: 20040426
  Receipt Date: 20040325
  Transmission Date: 20050107
  Serious: Yes (Hospitalization)
  Sender: FDA-Public Use
  Company Number: PHBS2004BR04237

PATIENT
  Sex: Male

DRUGS (3)
  1. SANDOSTATIN LAR [Suspect]
     Indication: CARCINOID SYNDROME
     Dosage: 20 MG
  2. SANDOSTATIN [Suspect]
     Indication: CARCINOID SYNDROME
     Dosage: .1 MG, Q8H
     Route: 058
  3. SANDOSTATIN [Suspect]
     Dosage: .1 MG, Q6H
     Route: 058

REACTIONS (5)
  - CARCINOID SYNDROME [None]
  - DIARRHOEA [None]
  - DISEASE RECURRENCE [None]
  - HYPOTENSION [None]
  - SYNCOPE [None]
